FAERS Safety Report 7605406-5 (Version None)
Quarter: 2011Q3

REPORT INFORMATION
  Report Type: 
  Country: None (occurrence: None)
  Receive Date: 20110713
  Receipt Date: 20110629
  Transmission Date: 20111222
  Serious: Yes (Hospitalization, Other)
  Sender: FDA-Public Use
  Company Number: US-BAYER-201039716NA

PATIENT
  Age: 47 Year
  Sex: Female
  Weight: 59 kg

DRUGS (19)
  1. YASMIN [Suspect]
     Indication: PREMENSTRUAL SYNDROME
  2. YASMIN [Suspect]
     Indication: CONTRACEPTION
     Dosage: UNK
     Dates: start: 20060501, end: 20081001
  3. DROSPIRENONE AND ETHINYL ESTRADIOL [Suspect]
     Indication: MENSTRUATION IRREGULAR
  4. ADVIL LIQUI-GELS [Concomitant]
  5. ZINC [Concomitant]
  6. DILAUDID [Concomitant]
     Dosage: UNK
     Dates: start: 20100214
  7. PROTONIX [Concomitant]
  8. DROSPIRENONE AND ETHINYL ESTRADIOL [Suspect]
     Indication: PREMENSTRUAL SYNDROME
  9. VITAMIN D [Concomitant]
  10. CALCIUM CARBONATE [Concomitant]
  11. MAGNESIUM [Concomitant]
  12. L-LYSINE [Concomitant]
  13. DROSPIRENONE AND ETHINYL ESTRADIOL [Suspect]
     Indication: CONTRACEPTION
     Dosage: UNK
     Dates: start: 20081001, end: 20100201
  14. GLUCOSAMINE HYDROCHLORIDE [Concomitant]
  15. YASMIN [Suspect]
     Indication: MENSTRUATION IRREGULAR
  16. ONE DAILY [VIT C,B12,D2,B9,FE+,B3,B6,RETINOL,B2,B1 HCL,VIT E,ZN+] [Concomitant]
  17. ZOFRAN [Concomitant]
     Dosage: UNK
     Dates: start: 20100214
  18. FLAGYL [Concomitant]
     Dosage: UNK
     Dates: start: 20100214
  19. LEVAQUIN [Concomitant]
     Dosage: UNK
     Dates: start: 20100214

REACTIONS (7)
  - ANGINA PECTORIS [None]
  - COLITIS ISCHAEMIC [None]
  - THROMBOSIS [None]
  - HAEMATEMESIS [None]
  - DIARRHOEA [None]
  - NON-CARDIAC CHEST PAIN [None]
  - ASTHMA [None]
